FAERS Safety Report 17000909 (Version 2)
Quarter: 2019Q4

REPORT INFORMATION
  Report Type: Report from Study
  Country: US (occurrence: US)
  Receive Date: 20191106
  Receipt Date: 20191114
  Transmission Date: 20200122
  Serious: No
  Sender: FDA-Public Use
  Company Number: US-JNJFOC-20191009735

PATIENT
  Age: 72 Year
  Sex: Female

DRUGS (7)
  1. IMBRUVICA [Suspect]
     Active Substance: IBRUTINIB
     Indication: B-CELL LYMPHOMA RECURRENT
     Dosage: 420 MG, QD
     Route: 048
     Dates: start: 20191001
  2. TYLENOL [Concomitant]
     Active Substance: ACETAMINOPHEN
  3. STOOL SOFTENER (DOCUSATE) [Concomitant]
     Active Substance: DOCUSATE
  4. RITUXAN [Concomitant]
     Active Substance: RITUXIMAB
  5. PREDNISOLONE. [Concomitant]
     Active Substance: PREDNISOLONE
  6. VITAMIN B12 [Concomitant]
     Active Substance: CYANOCOBALAMIN
  7. VITAMIN D                          /00107901/ [Concomitant]
     Active Substance: ERGOCALCIFEROL

REACTIONS (9)
  - Blood urine present [Unknown]
  - Chromaturia [Not Recovered/Not Resolved]
  - Constipation [Unknown]
  - Abdominal pain [Unknown]
  - White blood cell count increased [Unknown]
  - Urinary incontinence [Unknown]
  - Psoriasis [Not Recovered/Not Resolved]
  - Platelet count decreased [Unknown]
  - Nocturia [Unknown]

NARRATIVE: CASE EVENT DATE: 201910
